FAERS Safety Report 6407769-5 (Version None)
Quarter: 2009Q4

REPORT INFORMATION
  Report Type: 
  Country: None (occurrence: None)
  Receive Date: 20091020
  Receipt Date: 20091005
  Transmission Date: 20100525
  Serious: Yes (Other)
  Sender: FDA-Public Use
  Company Number: US-GENENTECH-292170

PATIENT

DRUGS (1)
  1. AVASTIN [Suspect]
     Indication: MACULAR DEGENERATION
     Dosage: 1.25 MG, UNK
     Route: 031

REACTIONS (5)
  - CATARACT [None]
  - MACULOPATHY [None]
  - RETINAL HAEMORRHAGE [None]
  - RETINAL TEAR [None]
  - SUBRETINAL FIBROSIS [None]
